FAERS Safety Report 10702556 (Version 3)
Quarter: 2015Q2

REPORT INFORMATION
  Report Type: Report from Study
  Country: ES (occurrence: ES)
  Receive Date: 20150109
  Receipt Date: 20150413
  Transmission Date: 20150821
  Serious: Yes (Death, Hospitalization)
  Sender: FDA-Public Use
  Company Number: ES-ASTRAZENECA-2015SE00797

PATIENT
  Age: 21967 Day
  Sex: Female
  Weight: 68.2 kg

DRUGS (2)
  1. OLAPARIB [Suspect]
     Active Substance: OLAPARIB
     Indication: LUNG NEOPLASM MALIGNANT
     Route: 048
     Dates: start: 20141126, end: 20141223
  2. GEFITINIB [Suspect]
     Active Substance: GEFITINIB
     Indication: LUNG NEOPLASM MALIGNANT
     Route: 048
     Dates: start: 20141126, end: 20141224

REACTIONS (3)
  - Lung infection [Fatal]
  - Herpes zoster [Fatal]
  - Genital pain [Fatal]

NARRATIVE: CASE EVENT DATE: 20141231
